FAERS Safety Report 14038684 (Version 2)
Quarter: 2018Q1

REPORT INFORMATION
  Report Type: Spontaneous
  Country: US (occurrence: US)
  Receive Date: 20171004
  Receipt Date: 20180226
  Transmission Date: 20180508
  Serious: Yes (Hospitalization, Other)
  Sender: FDA-Public Use
  Company Number: US-BAYER-2017-183522

PATIENT
  Age: 61 Year
  Sex: Male

DRUGS (1)
  1. KOGENATE FS [Suspect]
     Active Substance: ANTIHEMOPHILIC FACTOR, HUMAN RECOMBINANT
     Indication: FACTOR VIII DEFICIENCY
     Dosage: 2000 U, TIW
     Route: 042
     Dates: start: 20170724, end: 20170920

REACTIONS (3)
  - Haemarthrosis [None]
  - Joint stiffness [None]
  - Therapeutic embolisation [None]

NARRATIVE: CASE EVENT DATE: 20170919
